FAERS Safety Report 7768466-7 (Version None)
Quarter: 2011Q3

REPORT INFORMATION
  Report Type: 
  Country: None (occurrence: None)
  Receive Date: 20110922
  Receipt Date: 20110629
  Transmission Date: 20111222
  Serious: No
  Sender: FDA-Public Use
  Company Number: US-ASTRAZENECA-2011SE39143

PATIENT
  Sex: Female

DRUGS (3)
  1. SEROQUEL [Suspect]
     Indication: SLEEP DISORDER
     Dosage: 300MG HS, 50MG DAY
     Route: 048
  2. SEROQUEL [Suspect]
     Indication: DELUSIONAL DISORDER, UNSPECIFIED TYPE
     Dosage: 300MG HS, 50MG DAY
     Route: 048
  3. PRAZOSIN HCL [Concomitant]

REACTIONS (3)
  - DRUG DOSE OMISSION [None]
  - COGNITIVE DISORDER [None]
  - OFF LABEL USE [None]
